FAERS Safety Report 11162659 (Version 3)
Quarter: 2017Q2

REPORT INFORMATION
  Report Type: Spontaneous
  Country: US (occurrence: US)
  Receive Date: 20150604
  Receipt Date: 20170606
  Transmission Date: 20170829
  Serious: No
  Sender: FDA-Public Use
  Company Number: US-SA-2015SA001411

PATIENT
  Age: 87 Year
  Sex: Female

DRUGS (8)
  1. HUMALOG [Concomitant]
     Active Substance: INSULIN LISPRO
     Indication: DIABETES MELLITUS
     Dosage: 5-6 UNITS
     Dates: start: 2011
  2. AMLODIPINE/BENAZEPRIL [Concomitant]
     Indication: HYPERTENSION
     Dosage: 10 -40 MG
  3. METOPROLOL. [Concomitant]
     Active Substance: METOPROLOL
     Indication: HYPERTENSION
  4. LANTUS [Concomitant]
     Active Substance: INSULIN GLARGINE
     Indication: DIABETES MELLITUS
     Dosage: DOSE : 8- 10 UNITS
     Dates: start: 2011
  5. LANTUS SOLOSTAR [Suspect]
     Active Substance: INSULIN GLARGINE
     Indication: TYPE 2 DIABETES MELLITUS
     Dosage: 8-10 UNITS OF LANTUS AT BED TIME
     Route: 065
     Dates: start: 20110808
  6. HYDROCHLOROTHIAZIDE. [Concomitant]
     Active Substance: HYDROCHLOROTHIAZIDE
     Indication: HYPERTENSION
     Dates: start: 2014
  7. LANTUS SOLOSTAR [Suspect]
     Active Substance: INSULIN GLARGINE
     Indication: TYPE 2 DIABETES MELLITUS
     Dosage: DOSE:8 UNIT(S)
     Route: 065
  8. LANTUS SOLOSTAR [Suspect]
     Active Substance: INSULIN GLARGINE
     Indication: TYPE 2 DIABETES MELLITUS
     Dosage: DOSE:8 UNIT(S)
     Route: 065

REACTIONS (6)
  - Micturition urgency [Unknown]
  - Alopecia [Unknown]
  - Urinary incontinence [Unknown]
  - Blood glucose increased [Unknown]
  - Pollakiuria [Unknown]
  - Dry skin [Unknown]
